FAERS Safety Report 9832532 (Version 1)
Quarter: 2014Q1

REPORT INFORMATION
  Report Type: Spontaneous
  Country: IT (occurrence: IT)
  Receive Date: 20140121
  Receipt Date: 20140121
  Transmission Date: 20141002
  Serious: Yes (Hospitalization)
  Sender: FDA-Public Use
  Company Number: IT-BAYER-2014-008132

PATIENT
  Age: 80 Year
  Sex: Male

DRUGS (7)
  1. CARDIOASPIRIN [Suspect]
     Indication: THROMBOSIS PROPHYLAXIS
     Dosage: DAILY DOSE 100 MG
     Route: 048
     Dates: start: 20130101, end: 20131010
  2. COUMADIN [Suspect]
     Indication: ATRIAL FIBRILLATION
     Dosage: 5 MG, PRN
     Route: 048
     Dates: start: 20130101, end: 20131010
  3. PLAVIX [Suspect]
     Indication: THROMBOSIS PROPHYLAXIS
     Dosage: DAILY DOSE 75 MG
     Route: 048
     Dates: start: 20130101, end: 20131010
  4. PEPTAZOL [Concomitant]
     Dosage: DAILY DOSE 1 DF
     Route: 048
  5. LEVEMIR [Concomitant]
     Dosage: DAILY DOSE 28 IU
     Route: 058
  6. NOVORAPID [Concomitant]
     Dosage: DAILY DOSE 8 IU
     Route: 058
  7. FORZAAR [Concomitant]
     Route: 048

REACTIONS (1)
  - Anaemia [Unknown]
